FAERS Safety Report 5637251-4 (Version None)
Quarter: 2008Q1

REPORT INFORMATION
  Report Type: 
  Country: None (occurrence: None)
  Receive Date: 20080225
  Receipt Date: 20070802
  Transmission Date: 20080703
  Serious: Yes (Other)
  Sender: FDA-Public Use
  Company Number: US-BRISTOL-MYERS SQUIBB COMPANY-13865886

PATIENT

DRUGS (1)
  1. KENALOG-10 [Suspect]

REACTIONS (1)
  - ANAPHYLACTIC REACTION [None]
